FAERS Safety Report 20517613 (Version 1)
Quarter: 2022Q1

REPORT INFORMATION
  Report Type: Spontaneous
  Country: US (occurrence: None)
  Receive Date: 20220225
  Receipt Date: 20220225
  Transmission Date: 20220423
  Serious: No
  Sender: FDA-Public Use
  Company Number: 2022A047579

PATIENT
  Age: 77 Year
  Sex: Male
  Weight: 68.5 kg

DRUGS (1)
  1. BRILINTA [Suspect]
     Active Substance: TICAGRELOR
     Indication: Stent placement
     Route: 048
     Dates: start: 202104, end: 20220110

REACTIONS (5)
  - Asthenia [Recovering/Resolving]
  - Coagulopathy [Recovering/Resolving]
  - Contusion [Recovered/Resolved]
  - Haemorrhage [Recovering/Resolving]
  - Dyspnoea [Recovering/Resolving]

NARRATIVE: CASE EVENT DATE: 20210101
